FAERS Safety Report 5085110-0 (Version None)
Quarter: 2006Q3

REPORT INFORMATION
  Report Type: 
  Country: None (occurrence: None)
  Receive Date: 20060816
  Receipt Date: 20060810
  Transmission Date: 20061208
  Serious: Yes (Other)
  Sender: FDA-Public Use
  Company Number: HQWYE484928JUL06

PATIENT
  Sex: Male

DRUGS (1)
  1. CORDARONE [Suspect]

REACTIONS (1)
  - ACUTE LEUKAEMIA [None]
